FAERS Safety Report 7343908-X (Version None)
Quarter: 2011Q1

REPORT INFORMATION
  Report Type: 
  Country: None (occurrence: None)
  Receive Date: 20110310
  Receipt Date: 20100122
  Transmission Date: 20110831
  Serious: No
  Sender: FDA-Public Use
  Company Number: A0840959A

PATIENT
  Age: 46 Year

DRUGS (2)
  1. NICORETTE [Suspect]
     Route: 048
  2. NICORETTE [Suspect]
     Route: 048

REACTIONS (1)
  - INTENTIONAL DRUG MISUSE [None]
